FAERS Safety Report 18933074 (Version 1)
Quarter: 2021Q1

REPORT INFORMATION
  Report Type: Spontaneous
  Country: US (occurrence: US)
  Receive Date: 20210223
  Receipt Date: 20210223
  Transmission Date: 20210420
  Serious: No
  Sender: FDA-Public Use
  Company Number: None

PATIENT
  Sex: Female

DRUGS (1)
  1. DIMETHYL FUMARATE DR 120MG MYLAN [Suspect]
     Active Substance: DIMETHYL FUMARATE
     Indication: MULTIPLE SCLEROSIS
     Route: 048
     Dates: start: 20201228

REACTIONS (5)
  - Therapy interrupted [None]
  - Anxiety [None]
  - Treatment noncompliance [None]
  - Skin burning sensation [None]
  - Flushing [None]
